FAERS Safety Report 24934345 (Version 1)
Quarter: 2025Q1

REPORT INFORMATION
  Report Type: Spontaneous
  Country: FI (occurrence: FI)
  Receive Date: 20250206
  Receipt Date: 20250206
  Transmission Date: 20250409
  Serious: Yes (Disabling)
  Sender: NOVO NORDISK
  Company Number: None

PATIENT
  Age: 48 Year
  Sex: Female

DRUGS (5)
  1. OZEMPIC [Suspect]
     Active Substance: SEMAGLUTIDE
     Indication: Obesity
     Dosage: 1.5 MG, QW
     Dates: start: 202111, end: 202212
  2. INNOVAIR [Concomitant]
     Active Substance: BECLOMETHASONE DIPROPIONATE\FORMOTEROL
     Indication: Asthma
     Route: 055
     Dates: start: 2021, end: 202309
  3. SPIRIVA RESPIMAT [Concomitant]
     Active Substance: TIOTROPIUM BROMIDE
     Indication: Asthma
     Dosage: 5 ?G, QD
     Route: 055
     Dates: start: 2021, end: 202309
  4. MEDITHYROX [Concomitant]
     Indication: Hypothyroidism
     Dosage: 175 MG, QD
     Route: 048
     Dates: start: 202111
  5. MEDITHYROX [Concomitant]
     Dosage: 150 MG, QD
     Route: 048

REACTIONS (3)
  - Optic nerve infarction [Recovered/Resolved with Sequelae]
  - Optic ischaemic neuropathy [Recovered/Resolved with Sequelae]
  - Off label use [Recovered/Resolved with Sequelae]

NARRATIVE: CASE EVENT DATE: 20220701
